FAERS Safety Report 9698896 (Version 3)
Quarter: 2014Q2

REPORT INFORMATION
  Report Type: Spontaneous
  Country: US (occurrence: US)
  Receive Date: 20131120
  Receipt Date: 20140418
  Transmission Date: 20141212
  Serious: Yes (Disabling, Other)
  Sender: FDA-Public Use
  Company Number: US-BRACCO-010216

PATIENT
  Age: 39 Year
  Sex: Female

DRUGS (20)
  1. MULTIHANCE [Suspect]
     Indication: NUCLEAR MAGNETIC RESONANCE IMAGING
     Route: 042
     Dates: start: 20070428, end: 20070428
  2. MULTIHANCE [Suspect]
     Indication: NUCLEAR MAGNETIC RESONANCE IMAGING BRAIN
     Dates: start: 20070913, end: 20070913
  3. OMNISCAN [Suspect]
     Indication: ANGIOGRAM
     Dates: start: 20060802, end: 20060802
  4. NITROGLYCERIN [Concomitant]
  5. PLAVIX [Concomitant]
  6. REGLAN [Concomitant]
     Dosage: BEFORE MEALS(A.C) AND BEDTIME (HS)
  7. RENAGEL [Concomitant]
     Dosage: 3 TIMES A DAY WITH MEALS
     Route: 048
  8. ZOLOFT [Concomitant]
     Dosage: 100;  2 TANLETS DAILY AT BEDTIME
     Route: 048
  9. PROCARDIA [Concomitant]
     Dosage: 60
     Route: 048
  10. SENSIPAR [Concomitant]
     Dosage: BEDTIME
  11. KLONOPIN [Concomitant]
     Dosage: BEDTIME
  12. NEPHROCAPS [Concomitant]
  13. DIOVAN [Concomitant]
     Dosage: BEDTIME
  14. LOPRESSOR [Concomitant]
  15. ATARAX [Concomitant]
  16. CLONIDINE [Concomitant]
  17. COMBIVENT [Concomitant]
     Dosage: 2 PUFFS
  18. ASPIRIN [Concomitant]
     Route: 049
  19. CALCIUM ACETATE [Concomitant]
     Dosage: 3 TABLETS
  20. ZOCOR [Concomitant]
     Dosage: BEDTIME

REACTIONS (2)
  - Nephrogenic systemic fibrosis [Unknown]
  - Skin fibrosis [Unknown]
